FAERS Safety Report 5092610-6 (Version None)
Quarter: 2006Q3

REPORT INFORMATION
  Report Type: 
  Country: None (occurrence: None)
  Receive Date: 20060828
  Receipt Date: 20060816
  Transmission Date: 20061208
  Serious: Yes (Hospitalization, Other)
  Sender: FDA-Public Use
  Company Number: 2006082439

PATIENT
  Age: 44 Year
  Sex: Female
  Weight: 104.3273 kg

DRUGS (3)
  1. GEODON [Suspect]
     Indication: SCHIZOAFFECTIVE DISORDER
     Dosage: 240 MG (80 MG, TID:  EVERY DAY), ORAL
     Route: 048
     Dates: start: 20020831, end: 20060614
  2. NEURONTIN [Suspect]
     Indication: INSOMNIA
     Dosage: 1800 MG (600 MG, TID:  EVERY DAY), ORAL
     Route: 048
     Dates: start: 20060128
  3. WELLBUTRIN SR [Concomitant]

REACTIONS (2)
  - BLOOD CREATINE PHOSPHOKINASE INCREASED [None]
  - MUSCULOSKELETAL STIFFNESS [None]
